FAERS Safety Report 18398583 (Version 2)
Quarter: 2020Q4

REPORT INFORMATION
  Report Type: Spontaneous
  Country: US (occurrence: US)
  Receive Date: 20201019
  Receipt Date: 20201109
  Transmission Date: 20210114
  Serious: Yes (Hospitalization)
  Sender: FDA-Public Use
  Company Number: US-VERTEX PHARMACEUTICALS-2020-020268

PATIENT
  Sex: Male

DRUGS (24)
  1. ALBUTEROL [SALBUTAMOL] [Concomitant]
     Active Substance: ALBUTEROL
  2. BROVANA [Concomitant]
     Active Substance: ARFORMOTEROL TARTRATE
  3. SCANDISHAKE MIX [Concomitant]
     Active Substance: DIETARY SUPPLEMENT
  4. ALTERRA [Concomitant]
  5. TRIKAFTA [Suspect]
     Active Substance: ELEXACAFTOR\IVACAFTOR\TEZACAFTOR
     Dosage: 2 ORANGE TABS, PER DAY
     Route: 048
     Dates: start: 2020
  6. TRIKAFTA [Suspect]
     Active Substance: ELEXACAFTOR\IVACAFTOR\TEZACAFTOR
     Dosage: FULL DOSE
     Route: 048
  7. IPRATROPIUM [Concomitant]
     Active Substance: IPRATROPIUM
  8. PULMOZYME [Concomitant]
     Active Substance: DORNASE ALFA
  9. TOBI PODHALER [Concomitant]
     Active Substance: TOBRAMYCIN
  10. VITAMIN C [Concomitant]
     Active Substance: ASCORBIC ACID
  11. LANSOPRAZOLE. [Concomitant]
     Active Substance: LANSOPRAZOLE
  12. AZITHROMYCIN ANHYDROUS. [Concomitant]
     Active Substance: AZITHROMYCIN ANHYDROUS
  13. CEFTAZIDIME. [Concomitant]
     Active Substance: CEFTAZIDIME
  14. HYPERSAL [Concomitant]
     Active Substance: SODIUM CHLORIDE
  15. ZENPEP [Concomitant]
     Active Substance: PANCRELIPASE AMYLASE\PANCRELIPASE LIPASE\PANCRELIPASE PROTEASE
  16. VENTOLIN [Concomitant]
     Active Substance: ALBUTEROL SULFATE
  17. VITAMIN D3 [Concomitant]
     Active Substance: CHOLECALCIFEROL
  18. TRIKAFTA [Suspect]
     Active Substance: ELEXACAFTOR\IVACAFTOR\TEZACAFTOR
     Indication: CYSTIC FIBROSIS
     Dosage: 2 TABS (100 MG ELEXA/ 50 MG TEZA/ 75 MG IVA) IN MORNING AND 1 TAB (150 MG IVA) IN EVENING
     Route: 048
     Dates: start: 20191130, end: 2020
  19. TRIKAFTA [Suspect]
     Active Substance: ELEXACAFTOR\IVACAFTOR\TEZACAFTOR
     Dosage: 1 ORANGE TAB PER DAY
     Route: 048
     Dates: start: 2020, end: 2020
  20. BOOST [Concomitant]
     Active Substance: DIETARY SUPPLEMENT
  21. CAYSTON [Concomitant]
     Active Substance: AZTREONAM
  22. FEROSUL [Concomitant]
     Active Substance: FERROUS SULFATE
  23. LANTUS [Concomitant]
     Active Substance: INSULIN GLARGINE
  24. NOVOLOG [Concomitant]
     Active Substance: INSULIN ASPART

REACTIONS (5)
  - Diarrhoea [Not Recovered/Not Resolved]
  - Aspartate aminotransferase increased [Recovered/Resolved]
  - Infective pulmonary exacerbation of cystic fibrosis [Not Recovered/Not Resolved]
  - Chills [Not Recovered/Not Resolved]
  - Pyrexia [Recovered/Resolved]

NARRATIVE: CASE EVENT DATE: 2020
